FAERS Safety Report 4589299-9 (Version None)
Quarter: 2005Q1

REPORT INFORMATION
  Report Type: 
  Country: None (occurrence: None)
  Receive Date: 20050223
  Receipt Date: 20050214
  Transmission Date: 20050727
  Serious: Yes (Life-Threatening, Hospitalization, Disabling, Other)
  Sender: FDA-Public Use
  Company Number: 200511386GDDC

PATIENT
  Age: 71 Year
  Sex: Female
  Weight: 54 kg

DRUGS (10)
  1. ARAVA [Suspect]
     Route: 048
     Dates: start: 20040923, end: 20050107
  2. PREDNISOLONE [Concomitant]
     Dates: start: 20021017, end: 20050107
  3. DICLOFENAC [Concomitant]
     Indication: RHEUMATOID ARTHRITIS
     Dates: start: 20021017, end: 20050107
  4. CALCICHEW D3 [Concomitant]
     Indication: STEROID THERAPY
     Dosage: DOSE: 1.5/10
     Dates: start: 20021017, end: 20050107
  5. CO-PROXAMOL [Concomitant]
     Indication: PAIN
     Dosage: DOSE: UNK
     Dates: start: 20021017, end: 20050107
  6. PERINDOPRIL [Concomitant]
     Indication: HYPERTENSION
     Dates: start: 20030404, end: 20050107
  7. BENDROFLUAZIDE [Concomitant]
     Indication: HYPERTENSION
     Dates: start: 20021017, end: 20050107
  8. ASPIRIN [Concomitant]
     Dates: start: 20040317, end: 20050107
  9. RISEDRONATE [Concomitant]
     Dates: start: 20021017, end: 20050107
  10. CORACTEN [Concomitant]
     Indication: HYPERTENSION
     Dates: start: 20030927, end: 20050107

REACTIONS (4)
  - ANAEMIA [None]
  - GASTRIC ULCER [None]
  - HYPONATRAEMIA [None]
  - WEIGHT DECREASED [None]
